FAERS Safety Report 6053147-0 (Version None)
Quarter: 2009Q1

REPORT INFORMATION
  Report Type: 
  Country: None (occurrence: None)
  Receive Date: 20090123
  Receipt Date: 20090114
  Transmission Date: 20090719
  Serious: Yes (Hospitalization)
  Sender: FDA-Public Use
  Company Number: GXKR2009DE00681

PATIENT
  Age: 84 Year
  Sex: Female

DRUGS (9)
  1. LISINOPRIL [Suspect]
     Indication: HYPERTENSION
     Dosage: ORAL
     Route: 048
     Dates: end: 20080617
  2. AMLODIPINE [Suspect]
     Indication: HYPERTENSION
     Dosage: 5 MG, BID, ORAL
     Route: 048
  3. METOPROLOL SUCCINATE [Suspect]
     Indication: HYPERTENSION
     Dosage: 100 MG, BID, ORAL
     Route: 048
  4. MOXONIDINE (NGX) (MOXONIDINE) UNKNOWN [Suspect]
     Indication: HYPERTENSION
     Dosage: 0.2 MG, BID, ORAL
     Route: 048
  5. ACETYLSALICYLIC ACID SRT [Concomitant]
  6. KEPPRA [Concomitant]
  7. PANTOPRAZOLE SODIUM [Concomitant]
  8. SIMVASTATIN [Concomitant]
  9. ISOSORBIDE DINITRATE [Suspect]
     Indication: HYPERTENSION
     Dosage: 0.41 MG, BUCCAL
     Route: 002
     Dates: end: 20080612

REACTIONS (1)
  - SYNCOPE [None]
